FAERS Safety Report 12561825 (Version 1)
Quarter: 2016Q3

REPORT INFORMATION
  Report Type: Spontaneous
  Country: US (occurrence: US)
  Receive Date: 20160715
  Receipt Date: 20160715
  Transmission Date: 20161109
  Serious: Yes (Other)
  Sender: FDA-Public Use
  Company Number: US-ELI_LILLY_AND_COMPANY-US201607001820

PATIENT
  Sex: Female

DRUGS (1)
  1. HUMULIN N [Suspect]
     Active Substance: INSULIN HUMAN
     Indication: GESTATIONAL DIABETES
     Dosage: UNK, UNKNOWN
     Route: 065
     Dates: start: 20160630, end: 20160703

REACTIONS (9)
  - Injection site pain [Unknown]
  - Dyspnoea [Unknown]
  - Muscle tightness [Unknown]
  - Maternal exposure during pregnancy [Unknown]
  - Throat tightness [Unknown]
  - Swollen tongue [Unknown]
  - Insomnia [Unknown]
  - Injection site pain [Unknown]
  - Musculoskeletal discomfort [Unknown]

NARRATIVE: CASE EVENT DATE: 20160630
